FAERS Safety Report 9094056 (Version 1)
Quarter: 2013Q1

REPORT INFORMATION
  Report Type: Spontaneous
  Country: FR (occurrence: FR)
  Receive Date: 20130201
  Receipt Date: 20130201
  Transmission Date: 20140127
  Serious: Yes (Hospitalization)
  Sender: FDA-Public Use
  Company Number: FR-ROCHE-1185778

PATIENT
  Age: 49 Year
  Sex: Female

DRUGS (9)
  1. ROACTEMRA [Suspect]
     Indication: ANKYLOSING SPONDYLITIS
     Route: 042
     Dates: start: 20120323, end: 20120807
  2. DROSPIRENONE/ETHINYL ESTRADIOL [Suspect]
     Indication: ORAL CONTRACEPTION
     Route: 065
  3. INNOHEP [Concomitant]
  4. PREVISCAN [Concomitant]
  5. ALDACTAZINE [Concomitant]
  6. LASILIX [Concomitant]
  7. DIFFU K [Concomitant]
  8. DOLIPRANE [Concomitant]
  9. ADENURIC [Concomitant]

REACTIONS (2)
  - Pulmonary embolism [Recovering/Resolving]
  - Phlebitis [Recovered/Resolved]
